FAERS Safety Report 21786255 (Version 2)
Quarter: 2023Q1

REPORT INFORMATION
  Report Type: Report from Study
  Country: US (occurrence: US)
  Receive Date: 20221228
  Receipt Date: 20230120
  Transmission Date: 20230418
  Serious: Yes (Other)
  Sender: FDA-Public Use
  Company Number: US-ABBVIE-4248349

PATIENT
  Age: 68 Year
  Sex: Male

DRUGS (2)
  1. HUMIRA [Suspect]
     Active Substance: ADALIMUMAB
     Indication: Crohn^s disease
     Route: 058
     Dates: start: 20071224
  2. HUMIRA [Suspect]
     Active Substance: ADALIMUMAB
     Indication: Psoriatic arthropathy
     Route: 058
     Dates: start: 20200726

REACTIONS (13)
  - Atrioventricular block [Unknown]
  - Sepsis [Unknown]
  - Psoriatic arthropathy [Recovering/Resolving]
  - Arthropathy [Unknown]
  - Pain [Unknown]
  - Musculoskeletal disorder [Unknown]
  - Unevaluable event [Unknown]
  - Grip strength decreased [Unknown]
  - Abdominal pain upper [Recovering/Resolving]
  - Gait inability [Unknown]
  - Musculoskeletal disorder [Unknown]
  - Intervertebral disc degeneration [Unknown]
  - Fall [Unknown]

NARRATIVE: CASE EVENT DATE: 20221206
